FAERS Safety Report 18362578 (Version 3)
Quarter: 2021Q3

REPORT INFORMATION
  Report Type: Spontaneous
  Country: US (occurrence: US)
  Receive Date: 20201009
  Receipt Date: 20210714
  Transmission Date: 20211014
  Serious: No
  Sender: FDA-Public Use
  Company Number: US-SA-2020SA276228

PATIENT
  Age: 73 Year
  Sex: Female

DRUGS (1)
  1. DUPIXENT [Suspect]
     Active Substance: DUPILUMAB
     Indication: ASTHMA
     Dosage: 300 MG, QOW
     Route: 058
     Dates: start: 20200730

REACTIONS (7)
  - Product preparation error [Unknown]
  - Condition aggravated [Unknown]
  - Visual impairment [Unknown]
  - Back pain [Unknown]
  - Dry eye [Unknown]
  - Injection related reaction [Unknown]
  - Wrong technique in product usage process [Unknown]
